FAERS Safety Report 8590697-7 (Version None)
Quarter: 2012Q3

REPORT INFORMATION
  Report Type: 
  Country: None (occurrence: None)
  Receive Date: 20120731
  Receipt Date: 20120723
  Transmission Date: 20120928
  Serious: Yes (Life-Threatening, Other)
  Sender: FDA-Public Use
  Company Number: AUR-APL-2012-02887

PATIENT
  Age: 50 Year
  Sex: Female

DRUGS (5)
  1. MIRTAZAPINE [Suspect]
     Indication: DEPRESSION
     Dosage: (45 MG), ORAL
     Route: 048
     Dates: start: 20060101, end: 20120121
  2. CLOZARIL [Suspect]
     Indication: SCHIZOPHRENIA
     Dosage: (75 MG)
     Dates: start: 20120112, end: 20120117
  3. ZOPICLONE [Concomitant]
  4. TOPIRAMATE [Suspect]
     Indication: PSYCHOTIC DISORDER
     Dosage: 300 MG (300 MG, 1 IN 1 D), ORAL
     Route: 048
     Dates: start: 20070101, end: 20120121
  5. AMOXICILLIN [Concomitant]

REACTIONS (6)
  - WHITE BLOOD CELL COUNT DECREASED [None]
  - TOOTHACHE [None]
  - ROAD TRAFFIC ACCIDENT [None]
  - NEUTROPENIA [None]
  - PLATELET COUNT DECREASED [None]
  - TOOTH INFECTION [None]
